FAERS Safety Report 18918818 (Version 1)
Quarter: 2021Q1

REPORT INFORMATION
  Report Type: Report from Study
  Country: US (occurrence: US)
  Receive Date: 20210220
  Receipt Date: 20210220
  Transmission Date: 20210420
  Serious: Yes (Death, Other)
  Sender: FDA-Public Use
  Company Number: US-SUN PHARMACEUTICAL INDUSTRIES LTD-2021R1-281082

PATIENT
  Age: 68 Year
  Sex: Female

DRUGS (4)
  1. NORTRIPTYLINE [Suspect]
     Active Substance: NORTRIPTYLINE
     Indication: PRODUCT USED FOR UNKNOWN INDICATION
     Route: 065
  2. ZOLPIDEM [Suspect]
     Active Substance: ZOLPIDEM TARTRATE
     Indication: PRODUCT USED FOR UNKNOWN INDICATION
     Route: 065
  3. OXYCODONE [Suspect]
     Active Substance: OXYCODONE
     Indication: PRODUCT USED FOR UNKNOWN INDICATION
     Route: 065
  4. DULOXETINE. [Suspect]
     Active Substance: DULOXETINE
     Indication: PRODUCT USED FOR UNKNOWN INDICATION
     Route: 065

REACTIONS (14)
  - Agitation [Fatal]
  - Pneumonia aspiration [Fatal]
  - Respiratory depression [Fatal]
  - Delirium [Fatal]
  - Pancreatitis [Fatal]
  - Acute kidney injury [Fatal]
  - Tachycardia [Fatal]
  - Hyperreflexia [Fatal]
  - Hypotension [Fatal]
  - Rhabdomyolysis [Fatal]
  - Acute lung injury [Fatal]
  - Hypertension [Fatal]
  - Metabolic acidosis [Fatal]
  - Thrombocytopenia [Fatal]
